FAERS Safety Report 9754349 (Version 1)
Quarter: 2013Q4

REPORT INFORMATION
  Report Type: Spontaneous
  Country: NO (occurrence: NO)
  Receive Date: 20131213
  Receipt Date: 20131213
  Transmission Date: 20140711
  Serious: Yes (Death)
  Sender: FDA-Public Use
  Company Number: NO-B.I. PHARMACEUTICALS,INC./RIDGEFIELD-2013-BI-41973NO

PATIENT
  Age: 71 Year
  Sex: Female

DRUGS (7)
  1. PRADAXA [Suspect]
     Indication: ATRIAL FIBRILLATION
     Dosage: 300 MG
     Route: 048
     Dates: start: 201304
  2. SOMAC [Concomitant]
     Indication: PROPHYLAXIS
     Dosage: 40 MG
     Route: 048
  3. EMCONCOR [Concomitant]
     Dosage: 10 MG
     Route: 048
  4. TRIOBE [Concomitant]
     Dosage: 1 ANZ
     Route: 048
  5. RAMIPRIL [Concomitant]
     Dosage: 10 MG
     Route: 048
  6. TRIATEC [Concomitant]
     Dosage: 10 MG
     Route: 048
  7. DUROFERON [Concomitant]
     Dosage: 100 MG
     Route: 048

REACTIONS (3)
  - Vaginal haemorrhage [Fatal]
  - Epistaxis [Fatal]
  - Rectal haemorrhage [Fatal]
